FAERS Safety Report 7934548-X (Version None)
Quarter: 2011Q4

REPORT INFORMATION
  Report Type: 
  Country: None (occurrence: None)
  Receive Date: 20111118
  Receipt Date: 20100702
  Transmission Date: 20120403
  Serious: Yes (Death, Other)
  Sender: FDA-Public Use
  Company Number: 2010AP001222

PATIENT
  Age: 27 Year
  Sex: Female

DRUGS (10)
  1. BUPROPION HCL [Concomitant]
  2. ZOLPIDEM [Concomitant]
  3. TRAMADOL HCL [Concomitant]
  4. IBUPROFEN [Concomitant]
  5. SUMATRIPTAN [Concomitant]
  6. TRAZODONE HCL [Concomitant]
  7. FEXOFENADINE [Concomitant]
  8. AZITHROMYCIN [Suspect]
     Indication: UPPER RESPIRATORY TRACT INFECTION
  9. BENZODIAZEPINE DERIVATIVES [Concomitant]
  10. TIZANIDINE HYDROCHLORIDE [Suspect]

REACTIONS (8)
  - HYPOXIC-ISCHAEMIC ENCEPHALOPATHY [None]
  - VENTRICULAR FIBRILLATION [None]
  - CARDIAC ARREST [None]
  - BRAIN DEATH [None]
  - TORSADE DE POINTES [None]
  - HAEMODYNAMIC INSTABILITY [None]
  - VENTRICULAR TACHYCARDIA [None]
  - BLOOD POTASSIUM DECREASED [None]
